FAERS Safety Report 17113074 (Version 1)
Quarter: 2019Q4

REPORT INFORMATION
  Report Type: Spontaneous
  Country: CH (occurrence: CH)
  Receive Date: 20191204
  Receipt Date: 20191204
  Transmission Date: 20200122
  Serious: Yes (Death, Hospitalization, Other)
  Sender: FDA-Public Use
  Company Number: CH-009507513-1911CHE012488

PATIENT
  Age: 82 Year
  Sex: Male
  Weight: 77 kg

DRUGS (7)
  1. CORDARONE [Suspect]
     Active Substance: AMIODARONE HYDROCHLORIDE
     Dosage: 200 MILLIGRAM, Q8H
     Route: 048
     Dates: start: 20191016, end: 20191018
  2. ATORVASTATIN CALCIUM. [Suspect]
     Active Substance: ATORVASTATIN CALCIUM
     Dosage: 40 MILLIGRAM, Q24H
     Route: 048
     Dates: end: 20191018
  3. KEYTRUDA [Suspect]
     Active Substance: PEMBROLIZUMAB
     Dosage: 200 MILLIGRAM, Q3W
     Route: 042
     Dates: start: 20190917, end: 20191007
  4. CONCOR [Suspect]
     Active Substance: BISOPROLOL FUMARATE
     Dosage: 5 MILLIGRAM, Q12H
     Route: 048
  5. SOLU-MEDROL [Suspect]
     Active Substance: METHYLPREDNISOLONE SODIUM SUCCINATE
     Dosage: CONTINUED WITH SPIRICORT 40 MG/D FROM 29OCT2019-30OCT2019, 20 MG/D FROM 31OCT2019-01NOV2019
     Dates: start: 20191025, end: 20191028
  6. ELIQUIS [Suspect]
     Active Substance: APIXABAN
     Dosage: 5 MILLIGRAM, Q12H
     Route: 048
     Dates: start: 201411
  7. SOLU-MEDROL [Suspect]
     Active Substance: METHYLPREDNISOLONE SODIUM SUCCINATE
     Dosage: 125 MILLIGRAM, QD
     Dates: start: 20191016, end: 20191025

REACTIONS (3)
  - Myocarditis [Fatal]
  - Liver disorder [Fatal]
  - Leukocytosis [Fatal]

NARRATIVE: CASE EVENT DATE: 20191015
